FAERS Safety Report 7892477-4 (Version None)
Quarter: 2011Q4

REPORT INFORMATION
  Report Type: 
  Country: None (occurrence: None)
  Receive Date: 20111104
  Receipt Date: 20111022
  Transmission Date: 20120403
  Serious: Yes (Hospitalization, Other)
  Sender: FDA-Public Use
  Company Number: GB-PAR PHARMACEUTICAL, INC-2011SCPR003373

PATIENT

DRUGS (3)
  1. DEPAKOTE [Suspect]
     Dosage: UNK
     Route: 065
  2. IBUPROFEN [Suspect]
     Indication: PRODUCT USED FOR UNKNOWN INDICATION
     Dosage: UNK, UNKNOWN
     Route: 048
  3. DEPAKOTE [Suspect]
     Indication: EPILEPSY
     Dosage: UNK, UNKNOWN
     Route: 048

REACTIONS (10)
  - HYPERNATRAEMIA [None]
  - METABOLIC ACIDOSIS [None]
  - BLOOD GLUCOSE DECREASED [None]
  - HYPOCALCAEMIA [None]
  - HYPERAMMONAEMIC ENCEPHALOPATHY [None]
  - TRANSAMINASES INCREASED [None]
  - COMA [None]
  - THROMBOCYTOPENIA [None]
  - MULTIPLE DRUG OVERDOSE [None]
  - RESPIRATORY ALKALOSIS [None]
